FAERS Safety Report 6987693-X (Version None)
Quarter: 2010Q3

REPORT INFORMATION
  Report Type: 
  Country: None (occurrence: None)
  Receive Date: 20100916
  Receipt Date: 20100908
  Transmission Date: 20110219
  Serious: Yes (Death, Hospitalization)
  Sender: FDA-Public Use
  Company Number: US-SANOFI-AVENTIS-2010SA042698

PATIENT
  Sex: Female
  Weight: 101.15 kg

DRUGS (4)
  1. LOVENOX [Suspect]
     Indication: ATRIAL FIBRILLATION
     Route: 058
     Dates: start: 20090702, end: 20100716
  2. COUMADIN [Suspect]
     Indication: PRODUCT USED FOR UNKNOWN INDICATION
     Route: 065
  3. CALCIUM CHANNEL BLOCKERS [Concomitant]
  4. BETA BLOCKING AGENTS [Concomitant]

REACTIONS (5)
  - DEATH [None]
  - DRUG ADMINISTRATION ERROR [None]
  - HYPERVOLAEMIA [None]
  - ISCHAEMIC HEPATITIS [None]
  - MUSCLE HAEMORRHAGE [None]
